FAERS Safety Report 21298884 (Version 1)
Quarter: 2022Q3

REPORT INFORMATION
  Report Type: Spontaneous
  Country: GU (occurrence: None)
  Receive Date: 20220904
  Receipt Date: 20220904
  Transmission Date: 20221027
  Serious: Yes (Life-Threatening, Hospitalization)
  Sender: FDA-Public Use
  Company Number: None

PATIENT
  Sex: Male

DRUGS (3)
  1. OPSUMIT [Suspect]
     Active Substance: MACITENTAN
     Indication: Pulmonary arterial hypertension
     Dosage: FREQUENCY : DAILY;?
     Route: 048
  2. Amlodipine 10mg Tablet [Concomitant]
  3. Uptravi 200-800mcg Titration Pack [Concomitant]

REACTIONS (3)
  - Oedema peripheral [None]
  - Acute hepatic failure [None]
  - Ascites [None]

NARRATIVE: CASE EVENT DATE: 20220902
